FAERS Safety Report 15264010 (Version 1)
Quarter: 2018Q4

REPORT INFORMATION
  Report Type: Spontaneous
  Country: DE (occurrence: DE)
  Receive Date: 20180810
  Receipt Date: 20180810
  Transmission Date: 20190204
  Serious: Yes (Hospitalization)
  Sender: FDA-Public Use
  Company Number: DE-HIKMA PHARMACEUTICALS USA INC.-DE-H14001-18-06708

PATIENT
  Age: 70 Year
  Sex: Female
  Weight: 74 kg

DRUGS (9)
  1. CARBOPLATIN. [Suspect]
     Active Substance: CARBOPLATIN
     Indication: FALLOPIAN TUBE CANCER
     Dosage: ()
  2. AVASTIN [Suspect]
     Active Substance: BEVACIZUMAB
     Indication: FALLOPIAN TUBE CANCER
     Dosage: ()
  3. CARBOPLATIN. [Suspect]
     Active Substance: CARBOPLATIN
     Indication: MALIGNANT PERITONEAL NEOPLASM
     Dosage: ()
  4. CARBOPLATIN. [Suspect]
     Active Substance: CARBOPLATIN
     Indication: OVARIAN CANCER
     Dosage: AUC 5: 390 - 543.9 MG?LAST DOSE PRIOR TO SAE: 11/SEP/2014
     Route: 042
     Dates: start: 20130718, end: 20140911
  5. PACLITAXEL. [Suspect]
     Active Substance: PACLITAXEL
     Indication: FALLOPIAN TUBE CANCER
     Dosage: ()
  6. AVASTIN [Suspect]
     Active Substance: BEVACIZUMAB
     Indication: OVARIAN CANCER
     Dosage: LAST DOSE PRIOR TO SAE: 11/SEP/2014, 1073 MG
     Route: 042
     Dates: start: 20130808, end: 20130808
  7. AVASTIN [Suspect]
     Active Substance: BEVACIZUMAB
     Indication: MALIGNANT PERITONEAL NEOPLASM
     Dosage: 990 MG
     Route: 042
     Dates: start: 20140911, end: 20140911
  8. PACLITAXEL. [Suspect]
     Active Substance: PACLITAXEL
     Indication: MALIGNANT PERITONEAL NEOPLASM
     Dosage: ()
  9. PACLITAXEL. [Suspect]
     Active Substance: PACLITAXEL
     Indication: OVARIAN CANCER
     Dosage: 231 - 313.3 MG
     Route: 042
     Dates: start: 20130718, end: 20130919

REACTIONS (7)
  - Pyelonephritis [Recovering/Resolving]
  - Diarrhoea [Recovering/Resolving]
  - Malignant pleural effusion [Recovering/Resolving]
  - Dyspnoea [Unknown]
  - Urinary tract obstruction [Recovered/Resolved]
  - General physical health deterioration [Recovering/Resolving]
  - Urinary tract infection [Recovering/Resolving]

NARRATIVE: CASE EVENT DATE: 20141006
